FAERS Safety Report 8874604 (Version 4)
Quarter: 2014Q3

REPORT INFORMATION
  Report Type: Spontaneous
  Country: US (occurrence: US)
  Receive Date: 20121030
  Receipt Date: 20140922
  Transmission Date: 20150326
  Serious: Yes (Hospitalization, Disabling, Other)
  Sender: FDA-Public Use
  Company Number: US-009507513-2011SP047265

PATIENT
  Sex: Female
  Weight: 79.38 kg

DRUGS (1)
  1. NUVARING [Suspect]
     Active Substance: ETHINYL ESTRADIOL\ETONOGESTREL
     Indication: PRODUCT USED FOR UNKNOWN INDICATION
     Dates: start: 200707, end: 200910

REACTIONS (16)
  - Visual acuity reduced [Unknown]
  - Chest pain [Unknown]
  - Deep vein thrombosis [Not Recovered/Not Resolved]
  - Wisdom teeth removal [Unknown]
  - Lung infiltration [Unknown]
  - Deep vein thrombosis [Unknown]
  - Deep vein thrombosis [Unknown]
  - Female sterilisation [Unknown]
  - Nocturia [Unknown]
  - Constipation [Unknown]
  - Maternal exposure before pregnancy [Unknown]
  - Anxiety [Unknown]
  - Tension headache [Unknown]
  - Muscle strain [Unknown]
  - Pulmonary embolism [Recovered/Resolved]
  - Musculoskeletal chest pain [Recovering/Resolving]

NARRATIVE: CASE EVENT DATE: 200707
